FAERS Safety Report 23056139 (Version 2)
Quarter: 2023Q4

REPORT INFORMATION
  Report Type: Report from Study
  Country: US (occurrence: US)
  Receive Date: 20231011
  Receipt Date: 20231215
  Transmission Date: 20240110
  Serious: Yes (Other)
  Sender: FDA-Public Use
  Company Number: US-002147023-NVSC2023US214159

PATIENT
  Sex: Female

DRUGS (1)
  1. COSENTYX [Suspect]
     Active Substance: SECUKINUMAB
     Indication: Psoriatic arthropathy
     Dosage: 300 MG, QMO (2 150MG SENSO READY PENS)
     Route: 058

REACTIONS (4)
  - Psoriatic arthropathy [Recovered/Resolved]
  - Spinal pain [Recovered/Resolved]
  - Inflammation [Unknown]
  - Inappropriate schedule of product administration [Unknown]
